FAERS Safety Report 6371252-6 (Version None)
Quarter: 2009Q3

REPORT INFORMATION
  Report Type: 
  Country: None (occurrence: None)
  Receive Date: 20090923
  Receipt Date: 20070814
  Transmission Date: 20100115
  Serious: No
  Sender: FDA-Public Use
  Company Number: US-ASTRAZENECA-2006UW27828

PATIENT
  Age: 40 Year
  Sex: Female

DRUGS (10)
  1. SEROQUEL [Suspect]
     Dosage: 25-150 MG
     Route: 048
     Dates: start: 20000914
  2. EFFEXOR XR [Concomitant]
     Route: 048
  3. RITALIN-SR [Concomitant]
     Route: 048
  4. LORAZEPAM [Concomitant]
     Route: 048
  5. AMITRIPTYLINE [Concomitant]
     Route: 048
  6. ATENOLOL [Concomitant]
     Route: 065
  7. ULTRAM [Concomitant]
     Route: 065
  8. AMARYL [Concomitant]
     Route: 065
  9. CELEBREX [Concomitant]
     Route: 048
  10. NEFAZODONE HCL [Concomitant]
     Route: 048

REACTIONS (20)
  - ARTHROPATHY [None]
  - ATTENTION DEFICIT/HYPERACTIVITY DISORDER [None]
  - COUGH [None]
  - DIABETES MELLITUS [None]
  - DYSPNOEA [None]
  - EPICONDYLITIS [None]
  - MENOMETRORRHAGIA [None]
  - MYOFASCIAL PAIN SYNDROME [None]
  - OESOPHAGITIS [None]
  - PELVIC PAIN [None]
  - RADICULOPATHY [None]
  - ROTATOR CUFF SYNDROME [None]
  - SINUSITIS [None]
  - SOMNOLENCE [None]
  - SPINAL OSTEOARTHRITIS [None]
  - SYNOVITIS [None]
  - TENOSYNOVITIS STENOSANS [None]
  - TOBACCO ABUSE [None]
  - TYPE 2 DIABETES MELLITUS [None]
  - UTERINE LEIOMYOMA [None]
